FAERS Safety Report 9877834 (Version 3)
Quarter: 2014Q1

REPORT INFORMATION
  Report Type: Report from Study
  Country: AU (occurrence: AU)
  Receive Date: 20140206
  Receipt Date: 20140307
  Transmission Date: 20141002
  Serious: Yes (Hospitalization, Other)
  Sender: FDA-Public Use
  Company Number: PHHY2013AU124778

PATIENT
  Age: 51 Year
  Sex: Male

DRUGS (4)
  1. CLOZARIL [Suspect]
     Dosage: 100 MG, UNK
     Dates: start: 20131001
  2. CLOZARIL [Suspect]
     Dates: start: 20131009, end: 20131018
  3. CLOZARIL [Suspect]
     Dates: end: 20131024
  4. SODIUM VALPROATE [Concomitant]
     Dosage: 500 MG, TID

REACTIONS (8)
  - Myocarditis [Recovered/Resolved]
  - C-reactive protein increased [Not Recovered/Not Resolved]
  - Troponin I increased [Unknown]
  - Brain natriuretic peptide increased [Unknown]
  - General physical health deterioration [Unknown]
  - Tachycardia [Unknown]
  - Pyrexia [Unknown]
  - Dizziness [Unknown]
